FAERS Safety Report 4661336-2 (Version None)
Quarter: 2005Q2

REPORT INFORMATION
  Report Type: 
  Country: None (occurrence: None)
  Receive Date: 20050513
  Receipt Date: 20050504
  Transmission Date: 20051028
  Serious: Yes (Other)
  Sender: FDA-Public Use
  Company Number: GB-ABBOTT-05P-167-0299917-00

PATIENT

DRUGS (1)
  1. EPILIM CHRONO TABLETS [Suspect]
     Indication: CONVULSION
     Dosage: 750 MG TWICE DAILY + EXTRA 500 MG DAILY
     Route: 048

REACTIONS (2)
  - DRUG INEFFECTIVE [None]
  - STOOL ANALYSIS ABNORMAL [None]
